FAERS Safety Report 9165201 (Version 1)
Quarter: 2013Q1

REPORT INFORMATION
  Report Type: Report from Study
  Country: GB (occurrence: GB)
  Receive Date: 20130315
  Receipt Date: 20130315
  Transmission Date: 20140127
  Serious: Yes (Disabling)
  Sender: FDA-Public Use
  Company Number: GB-BAYER-2013-031608

PATIENT
  Sex: Female

DRUGS (2)
  1. BETAFERON [Suspect]
  2. PAINKILLER [Concomitant]

REACTIONS (3)
  - Impaired work ability [Not Recovered/Not Resolved]
  - Feeling abnormal [None]
  - Influenza like illness [Not Recovered/Not Resolved]
